FAERS Safety Report 22349577 (Version 1)
Quarter: 2023Q2

REPORT INFORMATION
  Report Type: Spontaneous
  Country: FR (occurrence: FR)
  Receive Date: 20230522
  Receipt Date: 20230522
  Transmission Date: 20230721
  Serious: Yes (Hospitalization)
  Sender: FDA-Public Use
  Company Number: None

PATIENT
  Age: 87 Year
  Sex: Female

DRUGS (6)
  1. HYDROCHLOROTHIAZIDE [Suspect]
     Active Substance: HYDROCHLOROTHIAZIDE
     Indication: Hypertension
     Dosage: UNK
     Route: 048
     Dates: start: 202001, end: 20230419
  2. ESOMEPRAZOLE [Suspect]
     Active Substance: ESOMEPRAZOLE
     Indication: Gastrooesophageal reflux disease
     Dosage: UNK
     Route: 048
     Dates: start: 202001, end: 20230419
  3. VALSARTAN [Suspect]
     Active Substance: VALSARTAN
     Indication: Hypertension
     Dosage: UNK
     Route: 048
     Dates: start: 202001, end: 20230419
  4. AMITRIPTYLINE HYDROCHLORIDE [Suspect]
     Active Substance: AMITRIPTYLINE HYDROCHLORIDE
     Indication: Anxiety
     Dosage: 2 DROP (1/12 MILLILITRE)  QD (2 GOUTTES PAR JOUR)
     Route: 048
     Dates: start: 202001, end: 20230419
  5. LORAZEPAM [Suspect]
     Active Substance: LORAZEPAM
     Indication: Anxiety
     Dosage: 1 MG, QD, (1 MG PAR JOUR)
     Route: 048
     Dates: start: 202001, end: 20230419
  6. REPAGLINIDE [Suspect]
     Active Substance: REPAGLINIDE
     Indication: Diabetes mellitus
     Dosage: UNK
     Route: 048
     Dates: start: 202001, end: 20230419

REACTIONS (1)
  - Hyponatraemia [Recovering/Resolving]

NARRATIVE: CASE EVENT DATE: 20230419
